FAERS Safety Report 8445371-4 (Version None)
Quarter: 2012Q2

REPORT INFORMATION
  Report Type: 
  Country: None (occurrence: None)
  Receive Date: 20120323
  Receipt Date: 20111028
  Transmission Date: 20120825
  Serious: Yes (Other)
  Sender: FDA-Public Use
  Company Number: 163-21880-11110030

PATIENT
  Age: 63 Year
  Sex: Female

DRUGS (8)
  1. FOSAMAX [Concomitant]
  2. CELLCEPT [Concomitant]
  3. REVLIMID [Suspect]
     Indication: MULTIPLE MYELOMA
     Dosage: 5 MG, QD X 21D/28D, PO
     Route: 048
     Dates: start: 20111028
  4. REVLIMID [Suspect]
     Indication: MULTIPLE MYELOMA
     Dosage: 10 MG, QD X 21D/28D, PO
     Route: 048
     Dates: start: 20110922, end: 20111006
  5. PROAIR (FLUTICASONE PROPIONATE) [Concomitant]
  6. TACROLIMUS [Concomitant]
  7. PRILOSEC [Concomitant]
  8. METOPROLOL TARTRATE [Concomitant]

REACTIONS (1)
  - NEUTROPENIA [None]
